FAERS Safety Report 20976020 (Version 2)
Quarter: 2022Q2

REPORT INFORMATION
  Report Type: Report from Study
  Country: CA (occurrence: None)
  Receive Date: 20220617
  Receipt Date: 20220624
  Transmission Date: 20220720
  Serious: Yes (Death, Life-Threatening)
  Sender: FDA-Public Use
  Company Number: 2022A198091

PATIENT
  Sex: Female

DRUGS (2)
  1. IMFINZI [Suspect]
     Active Substance: DURVALUMAB
     Indication: Small cell lung cancer extensive stage
     Route: 042
     Dates: start: 20220107, end: 20220401
  2. PREDNISONE [Concomitant]
     Active Substance: PREDNISONE

REACTIONS (1)
  - Pulmonary fibrosis [Fatal]
